FAERS Safety Report 4739613-6 (Version None)
Quarter: 2005Q3

REPORT INFORMATION
  Report Type: 
  Country: None (occurrence: None)
  Receive Date: 20050810
  Receipt Date: 20050413
  Transmission Date: 20060218
  Serious: No
  Sender: FDA-Public Use
  Company Number: US-GLAXOSMITHKLINE-A0553987A

PATIENT
  Age: 36 Year
  Sex: Male

DRUGS (2)
  1. SEROXAT [Suspect]
     Dosage: 20MG PER DAY
     Route: 048
  2. TRITACE [Concomitant]

REACTIONS (1)
  - DRUG INEFFECTIVE [None]
